FAERS Safety Report 4389093-8 (Version None)
Quarter: 2004Q2

REPORT INFORMATION
  Report Type: 
  Country: None (occurrence: None)
  Receive Date: 20040628
  Receipt Date: 20040625
  Transmission Date: 20050107
  Serious: Yes (Hospitalization)
  Sender: FDA-Public Use
  Company Number: US-SHR-03-019043

PATIENT
  Age: 62 Year
  Sex: Male

DRUGS (2)
  1. BETASERON [Suspect]
     Indication: MULTIPLE SCLEROSIS
     Dosage: 8 MIU, EVERY 2D, HS, SUBCUTANEOUS
     Route: 058
     Dates: start: 19931110, end: 20030830
  2. BACLOFEN [Suspect]

REACTIONS (2)
  - COMA [None]
  - INJECTION SITE CELLULITIS [None]
